FAERS Safety Report 8337494-5 (Version None)
Quarter: 2012Q2

REPORT INFORMATION
  Report Type: 
  Country: None (occurrence: None)
  Receive Date: 20120504
  Receipt Date: 20110802
  Transmission Date: 20120825
  Serious: No
  Sender: FDA-Public Use
  Company Number: US-TEVA-2011004066

PATIENT
  Sex: Female
  Weight: 63.56 kg

DRUGS (7)
  1. NUVIGIL [Suspect]
     Dosage: 250 MILLIGRAM;
     Route: 048
     Dates: start: 20110501
  2. NUVIGIL [Suspect]
     Dosage: 75 MILLIGRAM;
     Route: 048
     Dates: start: 20110529
  3. NUVIGIL [Suspect]
     Dosage: 125 MILLIGRAM;
     Route: 048
     Dates: end: 20110601
  4. NUVIGIL [Suspect]
     Indication: FATIGUE
     Dosage: 150 MILLIGRAM;
     Route: 048
     Dates: start: 20100101, end: 20100101
  5. MELOXICAM [Concomitant]
  6. COPAXONE [Concomitant]
     Dates: start: 20090101
  7. VESICARE [Concomitant]

REACTIONS (4)
  - PALPITATIONS [None]
  - DRUG INEFFECTIVE FOR UNAPPROVED INDICATION [None]
  - DYSPNOEA [None]
  - INSOMNIA [None]
